FAERS Safety Report 8202363 (Version 4)
Quarter: 2014Q1

REPORT INFORMATION
  Report Type: Spontaneous
  Country: US (occurrence: None)
  Receive Date: 20110909
  Receipt Date: 20130318
  Transmission Date: 20141002
  Serious: Yes (Other)
  Sender: FDA-Public Use
  Company Number: 2011SP035527

PATIENT
  Age: 55 Year
  Sex: Female
  Weight: 78.9 kg

DRUGS (13)
  1. VICTRELIS (BOCEPREVIR) CAPSULE [Suspect]
     Indication: PRODUCT USED FOR UNKNOWN INDICATION
     Route: 048
     Dates: start: 20110704, end: 20120415
  2. PEG-INTRON (PEGINTERFERON ALFA-2B) POWDER FOR INJECTION [Suspect]
     Indication: PRODUCT USED FOR UNKNOWN INDICATION
     Route: 058
     Dates: start: 20110603
  3. RIBAVIRIN (RIBAVIRIN) [Suspect]
     Indication: HEPATITIS C
     Route: 048
     Dates: start: 20110603
  4. RIBAVIRIN (RIBAVIRIN) [Suspect]
     Indication: HEPATIC CIRRHOSIS
     Route: 048
     Dates: start: 20110603
  5. CALCIUM WITH VITAMIN D [Concomitant]
  6. FOLIC ACID [Concomitant]
  7. IMITREX (SUMATRIPTAN) [Concomitant]
  8. IRON [Concomitant]
  9. LEXAPRO (ESCITALOPRAM OXALATE) [Concomitant]
  10. ORACEA (DOXYCYCLINE) [Concomitant]
  11. VITAMIN B COMPLEX [Concomitant]
  12. DESONIDE [Concomitant]
  13. NEUPOGEN (FILGRASTIM) [Concomitant]

REACTIONS (11)
  - Neutropenia [None]
  - Odynophagia [None]
  - Fatigue [None]
  - Myalgia [None]
  - Diarrhoea [None]
  - Weight decreased [None]
  - Insomnia [None]
  - Asthenia [None]
  - Influenza like illness [None]
  - Alopecia [None]
  - Viral load increased [None]
